FAERS Safety Report 25942781 (Version 1)
Quarter: 2025Q4

REPORT INFORMATION
  Report Type: Spontaneous
  Country: GB (occurrence: GB)
  Receive Date: 20251021
  Receipt Date: 20251021
  Transmission Date: 20260117
  Serious: Yes (Death, Other)
  Sender: REGENERON
  Company Number: GB-SA-2025SA212158

PATIENT
  Age: 71 Year
  Sex: Male

DRUGS (1)
  1. PRALUENT [Suspect]
     Active Substance: ALIROCUMAB
     Indication: Arteriosclerosis
     Dosage: 75 MG, QOW, SOLUTION FOR INJECTION
     Route: 058

REACTIONS (5)
  - Neoplasm malignant [Fatal]
  - Lung squamous cell carcinoma stage IV [Unknown]
  - Squamous cell carcinoma of the tongue [Unknown]
  - Metastases to trachea [Unknown]
  - Obstructive airways disorder [Unknown]
